FAERS Safety Report 4635772-4 (Version None)
Quarter: 2005Q2

REPORT INFORMATION
  Report Type: 
  Country: None (occurrence: None)
  Receive Date: 20050414
  Receipt Date: 20050405
  Transmission Date: 20051028
  Serious: Yes (Other)
  Sender: FDA-Public Use
  Company Number: GRP05000069

PATIENT
  Sex: Male

DRUGS (2)
  1. ACTONEL [Suspect]
     Dosage: 0 UNK, ORAL
     Route: 048
  2. ANTIPSYCHOTICS [Concomitant]

REACTIONS (1)
  - RHABDOMYOLYSIS [None]
